FAERS Safety Report 21542938 (Version 2)
Quarter: 2023Q2

REPORT INFORMATION
  Report Type: Report from Study
  Country: US (occurrence: US)
  Receive Date: 20221102
  Receipt Date: 20230403
  Transmission Date: 20230721
  Serious: No
  Sender: FDA-Public Use
  Company Number: US-ABBVIE-22K-163-4429495-00

PATIENT
  Sex: Female

DRUGS (1)
  1. IMBRUVICA [Suspect]
     Active Substance: IBRUTINIB
     Indication: Chronic lymphocytic leukaemia
     Route: 048
     Dates: start: 20200120

REACTIONS (10)
  - Spondylitis [Unknown]
  - Nail disorder [Recovering/Resolving]
  - Skin laceration [Recovering/Resolving]
  - Dysuria [Unknown]
  - Blood cholesterol increased [Not Recovered/Not Resolved]
  - Onychoclasis [Recovering/Resolving]
  - Contusion [Recovering/Resolving]
  - Onychomadesis [Unknown]
  - Blood bilirubin increased [Unknown]
  - Muscle spasms [Unknown]
